FAERS Safety Report 9620801 (Version 1)
Quarter: 2013Q4

REPORT INFORMATION
  Report Type: Spontaneous
  Country: CA (occurrence: CA)
  Receive Date: 20131015
  Receipt Date: 20131015
  Transmission Date: 20140711
  Serious: Yes (Life-Threatening)
  Sender: FDA-Public Use
  Company Number: CA-AMGEN-CANSP2013071380

PATIENT
  Age: 76 Year
  Sex: Female

DRUGS (1)
  1. XGEVA [Suspect]
     Indication: LUNG DISORDER
     Dosage: 120 / 1.7 MG/L, UNK
     Route: 065
     Dates: start: 20120309

REACTIONS (1)
  - Terminal state [Not Recovered/Not Resolved]
